FAERS Safety Report 16953843 (Version 2)
Quarter: 2019Q4

REPORT INFORMATION
  Report Type: Spontaneous
  Country: US (occurrence: US)
  Receive Date: 20191023
  Receipt Date: 20191107
  Transmission Date: 20200122
  Serious: Yes (Hospitalization)
  Sender: FDA-Public Use
  Company Number: US-FARMAPROD-201910-1619

PATIENT
  Sex: Male

DRUGS (22)
  1. SPIRONOLACTONE. [Concomitant]
     Active Substance: SPIRONOLACTONE
     Route: 048
  2. TRAZODONE [Concomitant]
     Active Substance: TRAZODONE HYDROCHLORIDE
     Route: 048
  3. NEOMYCIN. [Concomitant]
     Active Substance: NEOMYCIN
     Dosage: 3.5MG/G-10.00 UNIT/G-0.1% APPLY ONE SMALL AMOUNT INTO RIGHT EYE AT BEDTIME
  4. ASPIRINE [Concomitant]
     Active Substance: ASPIRIN
     Route: 048
  5. CLOPIDOGREL [Concomitant]
     Active Substance: CLOPIDOGREL BISULFATE
     Route: 048
  6. FUROSEMIDE. [Concomitant]
     Active Substance: FUROSEMIDE
     Dosage: 10MG/ML
     Route: 048
  7. METOPROLOL SUCCINATE. [Concomitant]
     Active Substance: METOPROLOL SUCCINATE
     Route: 048
  8. NORVASC [Concomitant]
     Active Substance: AMLODIPINE BESYLATE
     Route: 048
  9. POLYTRIM [Concomitant]
     Active Substance: POLYMYXIN B SULFATE\TRIMETHOPRIM SULFATE
     Dosage: 10.000 UNIT- 1MG/ML
     Route: 047
  10. OXERVATE [Suspect]
     Active Substance: CENEGERMIN-BKBJ
     Indication: NEUROTROPHIC KERATOPATHY
     Route: 047
  11. METFORMIN [Concomitant]
     Active Substance: METFORMIN HYDROCHLORIDE
     Route: 048
  12. TYLENOL [Concomitant]
     Active Substance: ACETAMINOPHEN
     Dosage: 300/30 MG
     Route: 048
  13. ATORVASTATIN [Concomitant]
     Active Substance: ATORVASTATIN
     Route: 048
  14. FISH OIL [Concomitant]
     Active Substance: FISH OIL
     Route: 048
  15. LOSARTAN. [Concomitant]
     Active Substance: LOSARTAN
     Route: 048
  16. SERTRALINE [Concomitant]
     Active Substance: SERTRALINE HYDROCHLORIDE
     Dosage: 1/2 TABLET BY MOUTH ONCE A DAY
     Route: 048
  17. VIBRAMYCIN [Concomitant]
     Active Substance: DOXYCYCLINE
     Route: 048
  18. DUREZOL [Concomitant]
     Active Substance: DIFLUPREDNATE
     Route: 047
  19. LANTUS [Concomitant]
     Active Substance: INSULIN GLARGINE
     Dosage: 1 UNIT SUBCUTANEOUS AS DIRECTED
     Route: 058
  20. THERATEARS [Concomitant]
     Active Substance: CARBOXYMETHYLCELLULOSE SODIUM
     Route: 047
  21. OXERVATE [Suspect]
     Active Substance: CENEGERMIN-BKBJ
     Indication: PROPHYLAXIS AGAINST TRANSPLANT REJECTION
  22. NOVOLOG [Concomitant]
     Active Substance: INSULIN ASPART
     Route: 058

REACTIONS (2)
  - Corneal transplant [Unknown]
  - Off label use [Unknown]
